FAERS Safety Report 22131612 (Version 2)
Quarter: 2023Q2

REPORT INFORMATION
  Report Type: Spontaneous
  Country: US (occurrence: US)
  Receive Date: 20230323
  Receipt Date: 20230404
  Transmission Date: 20230721
  Serious: No
  Sender: FDA-Public Use
  Company Number: US-SA-SAC20230322000379

PATIENT
  Sex: Male

DRUGS (1)
  1. DUPIXENT [Suspect]
     Active Substance: DUPILUMAB
     Dosage: 300 MG, FREQUENCY: OTHER
     Route: 058

REACTIONS (2)
  - Eczema [Unknown]
  - Therapeutic response decreased [Unknown]
